FAERS Safety Report 8130077-1 (Version None)
Quarter: 2011Q4

REPORT INFORMATION
  Report Type: 
  Country: None (occurrence: None)
  Receive Date: 20111227
  Receipt Date: 20110829
  Transmission Date: 20120403
  Serious: No
  Sender: FDA-Public Use
  Company Number: PHEH2011US03294

PATIENT
  Sex: Female

DRUGS (6)
  1. CYCLOBENZAPRINE (CYCLOBENZAPRINE) CAPSULE, 15 MG [Concomitant]
  2. GILENYA [Suspect]
     Dosage: 0.5 MG, QD, ORAL
     Route: 048
  3. VITAMIN B12 (CYANOCOBALAMIN) TABLET, 1500 U [Concomitant]
  4. HYDROCODONE W/APAP (HYDROCODONE, PARACETAMOL) CAPSULE, 5/500 MG [Concomitant]
  5. VITAMIN D (ERGOCALCIFEROL) CAPSULE, 1000 U [Concomitant]
  6. ACETAMINOPHEN (PARACETAMOL) CAPSULE, 500 MG [Concomitant]

REACTIONS (3)
  - HYPOAESTHESIA [None]
  - BURNING SENSATION [None]
  - PARAESTHESIA [None]
